FAERS Safety Report 10334342 (Version 1)
Quarter: 2014Q3

REPORT INFORMATION
  Report Type: Spontaneous
  Country: US (occurrence: None)
  Receive Date: 20140721
  Receipt Date: 20140721
  Transmission Date: 20150326
  Serious: Yes (Other)
  Sender: FDA-Public Use
  Company Number: ADR-2014-01266

PATIENT
  Age: 50 Year
  Sex: Female

DRUGS (20)
  1. LUNESTA [Suspect]
     Active Substance: ESZOPICLONE
  2. LIPITOR [Suspect]
     Active Substance: ATORVASTATIN CALCIUM
  3. ZOFRAN [Suspect]
     Active Substance: ONDANSETRON HYDROCHLORIDE
  4. FLUOXETINE [Suspect]
     Active Substance: FLUOXETINE\FLUOXETINE HYDROCHLORIDE
  5. ZETIA [Suspect]
     Active Substance: EZETIMIBE
  6. LASIX [Suspect]
     Active Substance: FUROSEMIDE
  7. DILAUDID [Suspect]
     Active Substance: HYDROMORPHONE HYDROCHLORIDE
  8. FENOFIBRATE. [Suspect]
     Active Substance: FENOFIBRATE
  9. VISTARIL [Suspect]
     Active Substance: HYDROXYZINE PAMOATE
  10. METFORMIN [Suspect]
     Active Substance: METFORMIN HYDROCHLORIDE
  11. BACLOFEN INTRATHECAL 95.0 MCG/ML [Suspect]
     Active Substance: BACLOFEN
     Indication: PAIN
     Dates: end: 20140709
  12. BACLOFEN. [Suspect]
     Active Substance: BACLOFEN
  13. MIRALAX [Suspect]
     Active Substance: POLYETHYLENE GLYCOL 3350
  14. LEVOTHYROXINE [Suspect]
     Active Substance: LEVOTHYROXINE
  15. TRIAZOLAM. [Suspect]
     Active Substance: TRIAZOLAM
  16. BUMETANIDE. [Suspect]
     Active Substance: BUMETANIDE
  17. XANAX [Suspect]
     Active Substance: ALPRAZOLAM
  18. PROTONIX [Suspect]
     Active Substance: PANTOPRAZOLE SODIUM
  19. POTASSIUM [Suspect]
     Active Substance: POTASSIUM
  20. LEVOTHROID [Suspect]
     Active Substance: LEVOTHYROXINE SODIUM

REACTIONS (4)
  - Pain [None]
  - Somnolence [None]
  - Feeling drunk [None]
  - Device issue [None]
